FAERS Safety Report 9872313 (Version 2)
Quarter: 2015Q2

REPORT INFORMATION
  Report Type: Spontaneous
  Country: FR (occurrence: FR)
  Receive Date: 20140205
  Receipt Date: 20150413
  Transmission Date: 20150821
  Serious: Yes (Hospitalization, Other)
  Sender: FDA-Public Use
  Company Number: FR-PFIZER INC-2014029025

PATIENT
  Age: 77 Year
  Sex: Female

DRUGS (9)
  1. LASILIX [Concomitant]
     Active Substance: FUROSEMIDE
     Dosage: 40 MG, 3X/DAY
     Route: 048
  2. DELURSAN [Concomitant]
     Active Substance: URSODIOL
     Dosage: 250 MG, 2X/DAY
     Route: 048
  3. CACIT D3 [Concomitant]
     Active Substance: CALCIUM\CHOLECALCIFEROL
     Dosage: UNK
     Route: 048
  4. REVATIO [Suspect]
     Active Substance: SILDENAFIL CITRATE
     Indication: PULMONARY HYPERTENSION
     Dosage: 20 MG, 3X/DAY
     Route: 048
     Dates: start: 201106, end: 20140114
  5. REVATIO [Suspect]
     Active Substance: SILDENAFIL CITRATE
     Indication: SCLERODERMA
  6. LEXOMIL ROCHE [Concomitant]
     Active Substance: BROMAZEPAM
     Dosage: 6 MG, 1X/DAY
     Route: 048
  7. TEMERIT [Concomitant]
     Active Substance: NEBIVOLOL
     Dosage: 5 MG, 1X/DAY
     Route: 048
  8. INEXIUM /01479302/ [Concomitant]
     Active Substance: ESOMEPRAZOLE MAGNESIUM
     Dosage: 40 MG, 1X/DAY
     Route: 048
  9. LERCAN [Concomitant]
     Active Substance: LERCANIDIPINE
     Dosage: 20 MG, 1X/DAY
     Route: 048

REACTIONS (12)
  - Gastrointestinal ulcer [Unknown]
  - Epistaxis [Unknown]
  - Mallory-Weiss syndrome [Unknown]
  - Varices oesophageal [Unknown]
  - Oesophageal haemorrhage [Unknown]
  - Diarrhoea [Unknown]
  - Anaemia [Unknown]
  - Lower gastrointestinal haemorrhage [Unknown]
  - Asthenia [Unknown]
  - Gastrointestinal angiodysplasia [Unknown]
  - Product use issue [Unknown]
  - Gastrointestinal haemorrhage [Recovered/Resolved with Sequelae]

NARRATIVE: CASE EVENT DATE: 2013
